FAERS Safety Report 8465536-5 (Version None)
Quarter: 2012Q2

REPORT INFORMATION
  Report Type: 
  Country: None (occurrence: None)
  Receive Date: 20120626
  Receipt Date: 20120621
  Transmission Date: 20120825
  Serious: Yes (Death, Hospitalization, Other)
  Sender: FDA-Public Use
  Company Number: US-CELGENEUS-163-50794-12063029

PATIENT
  Age: 52 Year
  Sex: Female
  Weight: 103.5 kg

DRUGS (6)
  1. GEMTUZUMAB [Suspect]
     Dosage: 3 MILLIGRAM/SQ. METER
     Route: 041
     Dates: start: 20120210, end: 20120217
  2. VIDAZA [Suspect]
     Dosage: 75 MILLIGRAM/SQ. METER
     Route: 058
     Dates: start: 20120210, end: 20120216
  3. RIBAVIRIN [Concomitant]
     Route: 065
  4. STEROIDS [Concomitant]
     Route: 065
     Dates: start: 20120201
  5. VIDAZA [Suspect]
     Dosage: 75 MILLIGRAM/SQ. METER
     Route: 041
     Dates: start: 20120210, end: 20120216
  6. ZOLINZA [Suspect]
     Dosage: 400 MILLIGRAM
     Route: 048
     Dates: start: 20120210, end: 20120218

REACTIONS (8)
  - RESPIRATORY FAILURE [None]
  - HAEMORRHAGE INTRACRANIAL [None]
  - COLITIS [None]
  - MULTI-ORGAN FAILURE [None]
  - CONFUSIONAL STATE [None]
  - SEPSIS [None]
  - ATELECTASIS [None]
  - HYPOXIA [None]
